FAERS Safety Report 9873786 (Version 1)
Quarter: 2014Q1

REPORT INFORMATION
  Report Type: Other
  Country: US (occurrence: US)
  Receive Date: 20140206
  Receipt Date: 20140206
  Transmission Date: 20141002
  Serious: No
  Sender: FDA-Public Use
  Company Number: US-ACORDA-ACO_34288_2013

PATIENT
  Age: 48 Year
  Sex: Female

DRUGS (3)
  1. AMPYRA [Suspect]
     Indication: PRODUCT USED FOR UNKNOWN INDICATION
     Dosage: 10 MG, Q 12 HRS
     Dates: start: 2010, end: 201205
  2. AMPYRA [Suspect]
     Dosage: 10 MG, Q 12 HRS
     Dates: start: 201205, end: 20130128
  3. AVONEX [Concomitant]
     Indication: MULTIPLE SCLEROSIS
     Dosage: UNK UNK, WEEKLY

REACTIONS (4)
  - Gait disturbance [Not Recovered/Not Resolved]
  - Wheelchair user [Not Recovered/Not Resolved]
  - Asthenia [Not Recovered/Not Resolved]
  - Drug dose omission [Unknown]
